FAERS Safety Report 13582866 (Version 1)
Quarter: 2017Q2

REPORT INFORMATION
  Report Type: Spontaneous
  Country: TR (occurrence: TR)
  Receive Date: 20170525
  Receipt Date: 20170525
  Transmission Date: 20170830
  Serious: Yes (Other)
  Sender: FDA-Public Use
  Company Number: PHHY2017TR072014

PATIENT
  Age: 25 Year
  Sex: Male

DRUGS (1)
  1. VANCOMYCIN [Suspect]
     Active Substance: VANCOMYCIN
     Indication: STAPHYLOCOCCAL INFECTION
     Route: 065

REACTIONS (3)
  - Atelectasis [Recovered/Resolved]
  - Pneumonia aspiration [Recovered/Resolved]
  - Drug resistance [Unknown]
